FAERS Safety Report 13069431 (Version 2)
Quarter: 2017Q1

REPORT INFORMATION
  Report Type: Spontaneous
  Country: US (occurrence: US)
  Receive Date: 20161228
  Receipt Date: 20170308
  Transmission Date: 20170428
  Serious: No
  Sender: FDA-Public Use
  Company Number: US-ASTRAZENECA-2016SF33577

PATIENT
  Sex: Male
  Weight: 108.9 kg

DRUGS (8)
  1. METOPROLOL TARTRATE. [Suspect]
     Active Substance: METOPROLOL TARTRATE
     Route: 065
  2. CRESTOR [Suspect]
     Active Substance: ROSUVASTATIN CALCIUM
     Indication: BLOOD CHOLESTEROL ABNORMAL
     Route: 048
  3. BABY ASPIRIN [Concomitant]
     Active Substance: ASPIRIN
     Dosage: 81.0MG UNKNOWN
  4. BENZONATATE. [Concomitant]
     Active Substance: BENZONATATE
     Indication: COUGH
  5. FUROSEMIDE. [Concomitant]
     Active Substance: FUROSEMIDE
  6. VENTOLIN [Concomitant]
     Active Substance: ALBUTEROL SULFATE
     Indication: COUGH
     Dosage: 2 PUFFS EVERY 4 HOURS
  7. QUINAPRIL. [Concomitant]
     Active Substance: QUINAPRIL
     Indication: CARDIAC DISORDER
  8. SYMBICORT [Suspect]
     Active Substance: BUDESONIDE\FORMOTEROL FUMARATE DIHYDRATE
     Indication: CHRONIC OBSTRUCTIVE PULMONARY DISEASE
     Dosage: TWO PUFFS, TWO TIMES A DAY
     Route: 055

REACTIONS (7)
  - Nasopharyngitis [Unknown]
  - Memory impairment [Unknown]
  - Drug dose omission [Unknown]
  - Cough [Unknown]
  - Product quality issue [Unknown]
  - Viral infection [Unknown]
  - Intentional product misuse [Unknown]
